FAERS Safety Report 9456995 (Version 2)
Quarter: 2013Q3

REPORT INFORMATION
  Report Type: Spontaneous
  Country: US (occurrence: US)
  Receive Date: 20130814
  Receipt Date: 20130828
  Transmission Date: 20140515
  Serious: Yes (Other)
  Sender: FDA-Public Use
  Company Number: US-AMGEN-USASP2013017022

PATIENT
  Age: 27 Year
  Sex: Female
  Weight: 47.62 kg

DRUGS (5)
  1. ENBREL [Suspect]
     Indication: RHEUMATOID ARTHRITIS
     Dosage: 50 MG, QWK
     Route: 058
     Dates: start: 20120420
  2. PRENATAL VITAMINS                  /02014401/ [Concomitant]
     Dosage: UNK UNK, QD
     Route: 048
     Dates: start: 20130201, end: 20130203
  3. FOLIC ACID [Concomitant]
     Dosage: 1 MG, QD
     Route: 048
     Dates: start: 20130125, end: 20130131
  4. PROBIOTIC                          /06395501/ [Concomitant]
     Dosage: UNK UNK, QD
     Route: 048
     Dates: start: 20130102, end: 20130311
  5. TUMS                               /00193601/ [Concomitant]
     Indication: BLOOD CALCIUM
     Dosage: UNK UNK, QD
     Route: 048
     Dates: start: 20130206, end: 20130311

REACTIONS (1)
  - Abortion spontaneous [Recovered/Resolved]
